FAERS Safety Report 15126416 (Version 3)
Quarter: 2018Q3

REPORT INFORMATION
  Report Type: Spontaneous
  Country: US (occurrence: US)
  Receive Date: 20180710
  Receipt Date: 20180918
  Transmission Date: 20181010
  Serious: Yes (Other)
  Sender: FDA-Public Use
  Company Number: US-SEPTODONT-201804690

PATIENT
  Age: 51 Year
  Sex: Female
  Weight: 68 kg

DRUGS (4)
  1. LIDOCAINE. [Suspect]
     Active Substance: LIDOCAINE
     Indication: DENTAL LOCAL ANAESTHESIA
     Dosage: 2 DFS VIA IAN BLOCK, 1 DF VIA PDL AND 1 DF VIA INTRAPULPAL. 27GA AND 30GA NEEDLES USED
     Dates: start: 20180604, end: 20180604
  2. SEPTOCAINE [Suspect]
     Active Substance: ARTICAINE HYDROCHLORIDE\EPINEPHRINE BITARTRATE
     Indication: DENTAL LOCAL ANAESTHESIA
     Dosage: VIA INFILTRATION??DRUG LOT #1, 2, OR 3
     Route: 004
     Dates: start: 20180604, end: 20180604
  3. SEPTOCAINE [Suspect]
     Active Substance: ARTICAINE HYDROCHLORIDE\EPINEPHRINE BITARTRATE
     Indication: DENTAL LOCAL ANAESTHESIA
     Dosage: VIA INFILTRATION??DRUG LOT #1, 2, OR 3
     Route: 004
     Dates: start: 20180604, end: 20180604
  4. SEPTOCAINE [Suspect]
     Active Substance: ARTICAINE HYDROCHLORIDE\EPINEPHRINE BITARTRATE
     Indication: DENTAL LOCAL ANAESTHESIA
     Dosage: VIA INFILTRATION??DRUG LOT #1, 2, OR 3
     Route: 004
     Dates: start: 20180604, end: 20180604

REACTIONS (6)
  - Dyspnoea [Recovered/Resolved]
  - Injection site discomfort [Recovered/Resolved]
  - Hypoaesthesia [Recovered/Resolved]
  - Hypoaesthesia eye [Recovered/Resolved]
  - Palpitations [Recovered/Resolved]
  - Asthenia [Recovered/Resolved]

NARRATIVE: CASE EVENT DATE: 20180604
